FAERS Safety Report 5853267-7 (Version None)
Quarter: 2008Q3

REPORT INFORMATION
  Report Type: 
  Country: None (occurrence: None)
  Receive Date: 20080820
  Receipt Date: 20080808
  Transmission Date: 20090109
  Serious: No
  Sender: FDA-Public Use
  Company Number: TPA2008A01284

PATIENT
  Sex: Male

DRUGS (1)
  1. ROZEREM [Suspect]
     Dosage: 3 TABLETS, HS, PER ORAL
     Route: 048
     Dates: start: 20080807, end: 20080808

REACTIONS (1)
  - NAUSEA [None]
